FAERS Safety Report 7732364-5 (Version None)
Quarter: 2011Q3

REPORT INFORMATION
  Report Type: 
  Country: None (occurrence: None)
  Receive Date: 20110906
  Receipt Date: 20110825
  Transmission Date: 20111222
  Serious: Yes (Other)
  Sender: FDA-Public Use
  Company Number: IT-ASTRAZENECA-2011SE41553

PATIENT
  Sex: Male

DRUGS (11)
  1. MADOPAR [Concomitant]
     Dosage: 100 MG LEVODOPA+25 MG BENSERAZIDE; TOTAL DAILY 300 MG LEVODOPA+75 MG BENSERAZIDE
     Route: 048
     Dates: start: 20110521, end: 20110528
  2. CONGESCOR [Concomitant]
     Route: 048
  3. SEROQUEL [Suspect]
     Route: 048
     Dates: start: 20110526
  4. EN [Suspect]
     Dosage: 1 MG / ML ORAL DROPS, SOLUTION FLACON FROM 20 ML, TOTAL DAILY DOSE 9 GGT
     Route: 048
     Dates: start: 20110527, end: 20110527
  5. PANTOPRAZOLE SODIUM [Concomitant]
     Route: 048
  6. MADOPAR [Concomitant]
     Route: 048
     Dates: start: 20100525, end: 20110520
  7. ENALAPRIL MALEATE [Concomitant]
     Route: 048
  8. XANAX [Suspect]
     Route: 048
     Dates: start: 20100529, end: 20110528
  9. ACETYLSALICYLIC ACID SRT [Concomitant]
  10. ALLOPURINOL [Concomitant]
  11. LASIX [Concomitant]
     Route: 048

REACTIONS (3)
  - LOSS OF CONSCIOUSNESS [None]
  - SOPOR [None]
  - HYPOTENSION [None]
